FAERS Safety Report 15407867 (Version 1)
Quarter: 2018Q3

REPORT INFORMATION
  Report Type: Report from Study
  Country: US (occurrence: US)
  Receive Date: 20180920
  Receipt Date: 20180920
  Transmission Date: 20181010
  Serious: Yes (Hospitalization)
  Sender: FDA-Public Use
  Company Number: US-JNJFOC-20180806743

PATIENT
  Age: 75 Year
  Sex: Male

DRUGS (18)
  1. IMBRUVICA [Suspect]
     Active Substance: IBRUTINIB
     Indication: CHRONIC LYMPHOCYTIC LEUKAEMIA
     Route: 048
     Dates: start: 20180725
  2. ALLOPURINOL. [Concomitant]
     Active Substance: ALLOPURINOL
  3. HEPARIN LOCK FLUSH [Concomitant]
     Active Substance: HEPARIN SODIUM
  4. FIBERCON [Concomitant]
     Active Substance: CALCIUM POLYCARBOPHIL
  5. KENALOG [Concomitant]
     Active Substance: TRIAMCINOLONE ACETONIDE
  6. TAMSULOSIN HCL [Concomitant]
     Active Substance: TAMSULOSIN HYDROCHLORIDE
  7. TRAMADOL HCL [Concomitant]
     Active Substance: TRAMADOL HYDROCHLORIDE
  8. CAMPHOR W/MENTHOL/PHENOL [Concomitant]
  9. GLIMEPIRIDE. [Concomitant]
     Active Substance: GLIMEPIRIDE
  10. SIMVASTATIN. [Concomitant]
     Active Substance: SIMVASTATIN
  11. CALCIUM [Concomitant]
     Active Substance: CALCIUM
  12. LORAZEPAM. [Concomitant]
     Active Substance: LORAZEPAM
  13. JANUVIA [Concomitant]
     Active Substance: SITAGLIPTIN PHOSPHATE
  14. GABAPENTIN. [Concomitant]
     Active Substance: GABAPENTIN
  15. FOLIC ACID. [Concomitant]
     Active Substance: FOLIC ACID
  16. VITAMIN D [Concomitant]
     Active Substance: CHOLECALCIFEROL
  17. PIOGLITAZONE. [Concomitant]
     Active Substance: PIOGLITAZONE
  18. RANITIDINE. [Concomitant]
     Active Substance: RANITIDINE

REACTIONS (5)
  - Nausea [Unknown]
  - Dyspnoea [Unknown]
  - Weight decreased [Unknown]
  - Fluid retention [Unknown]
  - Asthenia [Unknown]

NARRATIVE: CASE EVENT DATE: 20180729
